FAERS Safety Report 13611051 (Version 1)
Quarter: 2017Q2

REPORT INFORMATION
  Report Type: Report from Study
  Country: BR (occurrence: BR)
  Receive Date: 20170605
  Receipt Date: 20170605
  Transmission Date: 20170830
  Serious: Yes (Other)
  Sender: FDA-Public Use
  Company Number: BR-UCBSA-2017021411

PATIENT
  Age: 29 Year
  Sex: Female
  Weight: 72 kg

DRUGS (7)
  1. CITALOPRAM [Concomitant]
     Active Substance: CITALOPRAM HYDROBROMIDE
     Indication: DEPRESSION
     Dosage: (1 TABLET/DAY)
     Route: 048
     Dates: start: 2015
  2. CERTOLIZUMAB PEGOL [Suspect]
     Active Substance: CERTOLIZUMAB PEGOL
     Indication: ANKYLOSING SPONDYLITIS
     Dosage: 400 MG, MONTHLY (QM), SOLUTION FOR INJECTION
     Dates: start: 20170524
  3. CITALOPRAM [Concomitant]
     Active Substance: CITALOPRAM HYDROBROMIDE
     Indication: ANXIETY
  4. AMITRIPTYLINE [Concomitant]
     Active Substance: AMITRIPTYLINE
     Indication: ANXIETY
     Dosage: (1 TABLET/DAY)
     Route: 048
     Dates: start: 2015
  5. AMITRIPTYLINE [Concomitant]
     Active Substance: AMITRIPTYLINE
     Indication: PAIN
  6. TOPIRAMATE. [Concomitant]
     Active Substance: TOPIRAMATE
     Indication: DEPRESSION
     Dosage: (1 TABLET)
     Route: 048
     Dates: start: 2015
  7. PREGABALIN. [Concomitant]
     Active Substance: PREGABALIN
     Indication: FIBROMYALGIA
     Dosage: (1 TABLET, TWICE A DAY)
     Route: 048
     Dates: start: 201607

REACTIONS (5)
  - Tinnitus [Not Recovered/Not Resolved]
  - Ear infection [Not Recovered/Not Resolved]
  - Deafness [Not Recovered/Not Resolved]
  - Ear haemorrhage [Not Recovered/Not Resolved]
  - Drug prescribing error [Unknown]

NARRATIVE: CASE EVENT DATE: 20170524
